FAERS Safety Report 10877038 (Version 2)
Quarter: 2015Q1

REPORT INFORMATION
  Report Type: Spontaneous
  Country: IN (occurrence: IN)
  Receive Date: 20150302
  Receipt Date: 20150310
  Transmission Date: 20150721
  Serious: Yes (Other)
  Sender: FDA-Public Use
  Company Number: IN-AUROBINDO-AUR-APL-2015-01603

PATIENT
  Age: 54 Year
  Sex: Male

DRUGS (2)
  1. LITHIUM CARBONATE. [Suspect]
     Active Substance: LITHIUM CARBONATE
     Indication: BIPOLAR DISORDER
     Dosage: 800 MG, UNK
     Route: 065
  2. MIRTAZAPINE 15MG [Suspect]
     Active Substance: MIRTAZAPINE
     Indication: BIPOLAR DISORDER
     Dosage: 15 MG, DAILY
     Route: 065

REACTIONS (7)
  - Logorrhoea [Recovered/Resolved]
  - Irritability [Recovered/Resolved]
  - Drug withdrawal syndrome [Unknown]
  - Mania [Recovered/Resolved]
  - Insomnia [Recovered/Resolved]
  - Feeling abnormal [Recovered/Resolved]
  - Cyclothymic disorder [Recovered/Resolved]
